FAERS Safety Report 9821842 (Version 4)
Quarter: 2014Q4

REPORT INFORMATION
  Report Type: Spontaneous
  Country: US (occurrence: US)
  Receive Date: 20140116
  Receipt Date: 20141023
  Transmission Date: 20150529
  Serious: Yes (Hospitalization)
  Sender: FDA-Public Use
  Company Number: US-GILEAD-2014-0092208

PATIENT
  Age: 67 Year
  Sex: Female
  Weight: 96.6 kg

DRUGS (19)
  1. LANTUS [Concomitant]
     Active Substance: INSULIN GLARGINE
  2. COLCRYS [Concomitant]
     Active Substance: COLCHICINE
  3. FLUTICASONE PROPIONATE. [Concomitant]
     Active Substance: FLUTICASONE PROPIONATE
     Dosage: UNK
     Dates: start: 20130612
  4. KLOR-CON [Concomitant]
     Active Substance: POTASSIUM CHLORIDE
  5. AMLODIPINE BESYLATE. [Concomitant]
     Active Substance: AMLODIPINE BESYLATE
  6. LETAIRIS [Suspect]
     Active Substance: AMBRISENTAN
     Indication: PULMONARY ARTERIAL HYPERTENSION
  7. BUMETANIDE. [Concomitant]
     Active Substance: BUMETANIDE
     Dosage: UNK
     Dates: start: 20121213
  8. ASA [Concomitant]
     Active Substance: ASPIRIN
  9. HUMALOG [Concomitant]
     Active Substance: INSULIN LISPRO
  10. SIMVASTATIN. [Concomitant]
     Active Substance: SIMVASTATIN
  11. VITAMIN D [Concomitant]
     Active Substance: CHOLECALCIFEROL
  12. SYNTHROID [Concomitant]
     Active Substance: LEVOTHYROXINE SODIUM
  13. ALLOPURINOL. [Concomitant]
     Active Substance: ALLOPURINOL
  14. METOPROLOL TARTRATE. [Concomitant]
     Active Substance: METOPROLOL TARTRATE
  15. LETAIRIS [Suspect]
     Active Substance: AMBRISENTAN
     Indication: PULMONARY ARTERIAL HYPERTENSION
     Dosage: 10 MG, UNK
     Route: 065
     Dates: start: 20121119, end: 20131228
  16. SPIRIVA [Concomitant]
     Active Substance: TIOTROPIUM BROMIDE MONOHYDRATE
     Dosage: UNK
     Dates: start: 20121012
  17. ADVAIR HFA [Concomitant]
     Active Substance: FLUTICASONE PROPIONATE\SALMETEROL XINAFOATE
     Dosage: UNK
     Dates: start: 20121128
  18. FERROUS SULFATE [Concomitant]
     Active Substance: FERROUS SULFATE\FERROUS SULFATE, DRIED
  19. FENOFIBRATE. [Concomitant]
     Active Substance: FENOFIBRATE

REACTIONS (2)
  - Oedema [Unknown]
  - Oedema [Recovering/Resolving]

NARRATIVE: CASE EVENT DATE: 20131118
